FAERS Safety Report 15798695 (Version 1)
Quarter: 2019Q1

REPORT INFORMATION
  Report Type: Spontaneous
  Country: US (occurrence: US)
  Receive Date: 20190108
  Receipt Date: 20190108
  Transmission Date: 20190417
  Serious: Yes (Disabling)
  Sender: FDA-Public Use
  Company Number: None

PATIENT
  Age: 57 Year
  Sex: Female
  Weight: 60.75 kg

DRUGS (1)
  1. ATENOLOL 50 MG TABLET [Suspect]
     Active Substance: ATENOLOL
     Indication: HYPERTENSION
     Dosage: ?          QUANTITY:1 TABLET(S);?
     Route: 048
     Dates: end: 20181016

REACTIONS (10)
  - Nasal congestion [None]
  - Cough [None]
  - Lymphadenopathy [None]
  - Diarrhoea [None]
  - Sneezing [None]
  - Pain [None]
  - Nasopharyngitis [None]
  - Impaired work ability [None]
  - Colitis microscopic [None]
  - Anosmia [None]

NARRATIVE: CASE EVENT DATE: 20150504
